FAERS Safety Report 6738078-2 (Version None)
Quarter: 2010Q2

REPORT INFORMATION
  Report Type: 
  Country: None (occurrence: None)
  Receive Date: 20100521
  Receipt Date: 20100504
  Transmission Date: 20101027
  Serious: Yes (Hospitalization)
  Sender: FDA-Public Use
  Company Number: FKO201000173

PATIENT
  Age: 58 Year
  Sex: Male

DRUGS (4)
  1. OXALIPLATIN [Suspect]
     Indication: RECTAL CANCER
  2. CETUXIMAB (CETUXIMAB) (CETUXIMAB) [Concomitant]
  3. TEGAFUR-URACIL(TEGAFUR URACIL) (TEGAFUR URACIL) [Concomitant]
  4. FOLINIC ACID (FOLINIC ACID) (FOLINIC ACID) [Concomitant]

REACTIONS (17)
  - ABDOMINAL PAIN [None]
  - BODY TEMPERATURE INCREASED [None]
  - CHILLS [None]
  - DEHYDRATION [None]
  - DIARRHOEA [None]
  - HYPOTENSION [None]
  - INTESTINAL ULCER [None]
  - JEJUNAL PERFORATION [None]
  - MENTAL IMPAIRMENT [None]
  - MUCOSAL INFLAMMATION [None]
  - OLIGURIA [None]
  - PERITONITIS [None]
  - PLATELET COUNT DECREASED [None]
  - PNEUMATOSIS INTESTINALIS [None]
  - PORTAL VENOUS GAS [None]
  - POSTOPERATIVE WOUND INFECTION [None]
  - RECTAL HAEMORRHAGE [None]
